FAERS Safety Report 7290158-1 (Version None)
Quarter: 2011Q1

REPORT INFORMATION
  Report Type: 
  Country: None (occurrence: None)
  Receive Date: 20110214
  Receipt Date: 20110201
  Transmission Date: 20110831
  Serious: Yes (Hospitalization)
  Sender: FDA-Public Use
  Company Number: PHHY2010US76159

PATIENT
  Sex: Male

DRUGS (3)
  1. DEPAKOTE [Concomitant]
     Dosage: UNK
  2. CHLORDANE [Concomitant]
     Dosage: UNK
     Dates: start: 20090201
  3. FOCALIN XR [Suspect]
     Indication: ATTENTION DEFICIT/HYPERACTIVITY DISORDER
     Dosage: 15 MG, QD
     Route: 048
     Dates: start: 20090601

REACTIONS (6)
  - CONFUSIONAL STATE [None]
  - SPEECH DISORDER [None]
  - GRAND MAL CONVULSION [None]
  - SOMNOLENCE [None]
  - ACQUIRED EPILEPTIC APHASIA [None]
  - APHASIA [None]
